FAERS Safety Report 17049873 (Version 2)
Quarter: 2020Q1

REPORT INFORMATION
  Report Type: Spontaneous
  Country: PT (occurrence: PT)
  Receive Date: 20191119
  Receipt Date: 20200213
  Transmission Date: 20200409
  Serious: Yes (Other)
  Sender: FDA-Public Use
  Company Number: PT-PFIZER INC-2019497362

PATIENT
  Age: 54 Year
  Sex: Female

DRUGS (1)
  1. NORVASC [Suspect]
     Active Substance: AMLODIPINE BESYLATE
     Indication: HYPERTENSION
     Dosage: 5 MG, 1X/DAY
     Route: 048
     Dates: start: 20191014, end: 2019

REACTIONS (6)
  - Pharyngeal paraesthesia [Unknown]
  - Paraesthesia oral [Unknown]
  - Dry throat [Unknown]
  - Tongue dry [Unknown]
  - Tremor [Unknown]
  - Abdominal distension [Unknown]

NARRATIVE: CASE EVENT DATE: 20191014
